FAERS Safety Report 6379338-7 (Version None)
Quarter: 2009Q3

REPORT INFORMATION
  Report Type: 
  Country: None (occurrence: None)
  Receive Date: 20090923
  Receipt Date: 20090923
  Transmission Date: 20100115
  Serious: Yes (Death)
  Sender: FDA-Public Use
  Company Number: None

PATIENT
  Sex: Male
  Weight: 68.7 kg

DRUGS (4)
  1. INFLIXIMAB [Suspect]
     Indication: CROHN'S DISEASE
     Dosage: IV (DOSE + FREQ. UNKNOWN)
     Route: 042
     Dates: start: 20040101, end: 20060101
  2. PREDNISONE TAB [Concomitant]
  3. MERCAPTOPURINE [Concomitant]
  4. ASACOL [Concomitant]

REACTIONS (5)
  - CEREBRAL HAEMORRHAGE [None]
  - HEPATOSPLENIC T-CELL LYMPHOMA [None]
  - NEUROPATHY PERIPHERAL [None]
  - RESPIRATORY FAILURE [None]
  - SEPSIS [None]
